FAERS Safety Report 7037518-1 (Version None)
Quarter: 2010Q4

REPORT INFORMATION
  Report Type: 
  Country: None (occurrence: None)
  Receive Date: 20101011
  Receipt Date: 20101004
  Transmission Date: 20110411
  Serious: Yes (Other)
  Sender: FDA-Public Use
  Company Number: B0678241A

PATIENT
  Sex: Male
  Weight: 90 kg

DRUGS (4)
  1. REVOLADE [Suspect]
     Dosage: 50MG PER DAY
     Route: 048
     Dates: start: 20100903, end: 20100910
  2. ALDACTONE [Concomitant]
     Route: 048
     Dates: start: 20090101
  3. COVERSUM [Concomitant]
     Route: 048
     Dates: start: 20090101
  4. ZALDIAR [Concomitant]
     Route: 048
     Dates: start: 20100101

REACTIONS (3)
  - DRUG INEFFECTIVE [None]
  - HAEMORRHAGE [None]
  - PLATELET COUNT DECREASED [None]
